FAERS Safety Report 5714182-2 (Version None)
Quarter: 2008Q2

REPORT INFORMATION
  Report Type: 
  Country: None (occurrence: None)
  Receive Date: 20080423
  Receipt Date: 20071207
  Transmission Date: 20081010
  Serious: No
  Sender: FDA-Public Use
  Company Number: US-KINGPHARMUSA00001-K200701587

PATIENT

DRUGS (5)
  1. SKELAXIN [Suspect]
     Indication: MUSCLE SPASMS
     Dosage: 800 MG, TID PRN
     Route: 048
     Dates: start: 20071206, end: 20071207
  2. NEXIUM [Concomitant]
     Indication: GASTROOESOPHAGEAL REFLUX DISEASE
  3. NORVASC [Concomitant]
     Indication: HYPERTENSION
  4. ZOCOR [Concomitant]
     Indication: HYPERCHOLESTEROLAEMIA
  5. ALLEGRA [Concomitant]
     Indication: SEASONAL ALLERGY

REACTIONS (2)
  - EXPIRED DRUG ADMINISTERED [None]
  - NO ADVERSE EVENT [None]
